FAERS Safety Report 5008573-5 (Version None)
Quarter: 2006Q2

REPORT INFORMATION
  Report Type: 
  Country: None (occurrence: None)
  Receive Date: 20060522
  Receipt Date: 20060522
  Transmission Date: 20061013
  Serious: Yes (Hospitalization)
  Sender: FDA-Public Use
  Company Number: None

PATIENT
  Age: 88 Year
  Sex: Female
  Weight: 52.3 kg

DRUGS (1)
  1. FLUCONAZOLE [Suspect]
     Dosage: 100 MG DAILY PO
     Route: 048
     Dates: start: 20050830, end: 20050902

REACTIONS (3)
  - ABDOMINAL PAIN [None]
  - BACK PAIN [None]
  - PLATELET COUNT DECREASED [None]
